FAERS Safety Report 4835570-2 (Version None)
Quarter: 2005Q4

REPORT INFORMATION
  Report Type: 
  Country: None (occurrence: None)
  Receive Date: 20051123
  Receipt Date: 20051121
  Transmission Date: 20060501
  Serious: Yes (Life-Threatening)
  Sender: FDA-Public Use
  Company Number: US-BOEHRINGER INGELHEIM PHARMACEUTICALS, INC.-2005-BP-20503BP

PATIENT
  Sex: Female

DRUGS (4)
  1. SPIRIVA [Suspect]
     Indication: CHRONIC OBSTRUCTIVE PULMONARY DISEASE
     Route: 055
     Dates: start: 20051118
  2. WELLBUTRIN [Suspect]
  3. VISTARIL [Suspect]
  4. PHENOBARBITAL [Suspect]

REACTIONS (6)
  - DRUG ADMINISTRATION ERROR [None]
  - ELECTROCARDIOGRAM CHANGE [None]
  - GASTROINTESTINAL HAEMORRHAGE [None]
  - HEPATIC ENZYME INCREASED [None]
  - OVERDOSE [None]
  - RESPIRATORY FAILURE [None]
